FAERS Safety Report 6161357-7 (Version None)
Quarter: 2009Q2

REPORT INFORMATION
  Report Type: 
  Country: None (occurrence: None)
  Receive Date: 20090421
  Receipt Date: 20090414
  Transmission Date: 20091009
  Serious: Yes (Other)
  Sender: FDA-Public Use
  Company Number: US-BAYER-200912175NA

PATIENT
  Age: 21 Year
  Sex: Female

DRUGS (1)
  1. MIRENA [Suspect]
     Indication: CONTRACEPTION
     Dosage: CONTINUOUS
     Route: 015
     Dates: start: 20080726

REACTIONS (6)
  - FALLOPIAN TUBE DISORDER [None]
  - GALLBLADDER DISORDER [None]
  - MENSTRUATION DELAYED [None]
  - NAUSEA [None]
  - PELVIC PAIN [None]
  - VOMITING [None]
